FAERS Safety Report 8508042-1 (Version None)
Quarter: 2012Q3

REPORT INFORMATION
  Report Type: 
  Country: None (occurrence: None)
  Receive Date: 20120713
  Receipt Date: 20120709
  Transmission Date: 20120928
  Serious: Yes (Other)
  Sender: FDA-Public Use
  Company Number: PHHY2009CA17362

PATIENT
  Sex: Male

DRUGS (3)
  1. SANDOSTATIN LAR [Suspect]
     Indication: CARCINOID TUMOUR
     Dosage: 30 MG EVERY 3 WEEKS
     Route: 030
     Dates: start: 20061116
  2. SANDOSTATIN LAR [Suspect]
     Dosage: 30 MG, TIW
     Route: 030
  3. SANDOSTATIN LAR [Suspect]
     Dosage: 30 MG, UNK
     Route: 030

REACTIONS (11)
  - FRUSTRATION [None]
  - INJECTION SITE PAIN [None]
  - FLUSHING [None]
  - INJECTION SITE HAEMATOMA [None]
  - FREQUENT BOWEL MOVEMENTS [None]
  - BLOOD PRESSURE INCREASED [None]
  - DIARRHOEA [None]
  - HOT FLUSH [None]
  - GASTROOESOPHAGEAL REFLUX DISEASE [None]
  - PROSTATOMEGALY [None]
  - MOOD ALTERED [None]
